FAERS Safety Report 6317594-1 (Version None)
Quarter: 2009Q3

REPORT INFORMATION
  Report Type: 
  Country: None (occurrence: None)
  Receive Date: 20090821
  Receipt Date: 20090812
  Transmission Date: 20100115
  Serious: Yes (Hospitalization, Other)
  Sender: FDA-Public Use
  Company Number: DE-BAYER-200927607GPV

PATIENT
  Age: 62 Year
  Sex: Male
  Weight: 80 kg

DRUGS (6)
  1. ALEMTUZUMAB [Suspect]
     Indication: CHRONIC LYMPHOCYTIC LEUKAEMIA
     Dosage: FIRST CYCLE
     Route: 058
     Dates: start: 20090605, end: 20090710
  2. ALEMTUZUMAB [Suspect]
     Dosage: SECOND CYCLE
     Route: 058
     Dates: start: 20090713, end: 20090803
  3. DEXAMETHASONE [Suspect]
     Indication: CHRONIC LYMPHOCYTIC LEUKAEMIA
     Route: 048
     Dates: start: 20090727, end: 20090730
  4. NEULASTA [Suspect]
     Indication: CHRONIC LYMPHOCYTIC LEUKAEMIA
     Route: 058
     Dates: end: 20090729
  5. VALCYTE [Concomitant]
     Dosage: 2-0-2
  6. KEPINOL FORTE [Concomitant]
     Dosage: MONDAY, WEDNESDAY, FRIDAY

REACTIONS (11)
  - ABDOMINAL PAIN [None]
  - ANAEMIA [None]
  - C-REACTIVE PROTEIN INCREASED [None]
  - DIARRHOEA [None]
  - DYSURIA [None]
  - GASTROINTESTINAL INFECTION [None]
  - HEPATOMEGALY [None]
  - MALAISE [None]
  - POLLAKIURIA [None]
  - PYREXIA [None]
  - RHONCHI [None]
